FAERS Safety Report 9832753 (Version 1)
Quarter: 2014Q1

REPORT INFORMATION
  Report Type: Report from Study
  Country: US (occurrence: US)
  Receive Date: 20140121
  Receipt Date: 20140121
  Transmission Date: 20141002
  Serious: Yes (Other)
  Sender: FDA-Public Use
  Company Number: US-ABBVIE-14P-163-1189512-00

PATIENT
  Sex: Female

DRUGS (11)
  1. HUMIRA [Suspect]
     Indication: PSORIATIC ARTHROPATHY
     Dates: start: 2006
  2. HYDROXYCHLOROQUINE [Suspect]
     Indication: PSORIATIC ARTHROPATHY
  3. METHOTREXATE [Concomitant]
     Indication: PSORIATIC ARTHROPATHY
  4. FOLIC ACID [Concomitant]
     Indication: VITAMIN SUPPLEMENTATION
  5. LEVOTHYROXINE [Concomitant]
     Indication: THYROID DISORDER
  6. LEVOTHYROXINE [Concomitant]
     Indication: HYPOTHYROIDISM
  7. ZYRTEC [Concomitant]
     Indication: HYPERSENSITIVITY
  8. CENTRUM [Concomitant]
     Indication: PRODUCT USED FOR UNKNOWN INDICATION
  9. CALCIUM [Concomitant]
     Indication: PRODUCT USED FOR UNKNOWN INDICATION
  10. VITAMIN D [Concomitant]
     Indication: PRODUCT USED FOR UNKNOWN INDICATION
  11. ESTROGEN [Concomitant]
     Indication: PRODUCT USED FOR UNKNOWN INDICATION
     Dosage: RING

REACTIONS (4)
  - Trigger finger [Recovered/Resolved]
  - Herpes zoster [Recovered/Resolved]
  - Rash erythematous [Recovering/Resolving]
  - Rash pruritic [Recovering/Resolving]
